FAERS Safety Report 6525586-2 (Version None)
Quarter: 2010Q1

REPORT INFORMATION
  Report Type: 
  Country: None (occurrence: None)
  Receive Date: 20100104
  Receipt Date: 20091228
  Transmission Date: 20100710
  Serious: Yes (Hospitalization)
  Sender: FDA-Public Use
  Company Number: FR-PFIZER INC-2009315341

PATIENT
  Age: 3 Week
  Sex: Male
  Weight: 1.17 kg

DRUGS (1)
  1. PROSTINE VR [Suspect]
     Dosage: 0.2 UG/KG, UNK
     Route: 042
     Dates: start: 20091104, end: 20091119

REACTIONS (1)
  - CHEST X-RAY ABNORMAL [None]
